FAERS Safety Report 12657327 (Version 1)
Quarter: 2016Q3

REPORT INFORMATION
  Report Type: Spontaneous
  Country: US (occurrence: US)
  Receive Date: 20160816
  Receipt Date: 20160816
  Transmission Date: 20161109
  Serious: No
  Sender: FDA-Public Use
  Company Number: US-ENDO PHARMACEUTICALS INC.-2016-001028

PATIENT
  Age: 50 Year
  Sex: Male

DRUGS (1)
  1. SUMAVEL DOSEPRO [Suspect]
     Active Substance: SUMATRIPTAN SUCCINATE
     Indication: MIGRAINE
     Dosage: INJECT 6 MG SUBCUTANEOUSLY ONCE.?MAY REPEAT IN 1 HOUR. NO MORE THAN 2 IN 24 HOURS.
     Route: 058
     Dates: start: 2012

REACTIONS (2)
  - Device malfunction [Recovered/Resolved]
  - Drug dose omission [Unknown]

NARRATIVE: CASE EVENT DATE: 201601
